FAERS Safety Report 6424982-1 (Version None)
Quarter: 2009Q4

REPORT INFORMATION
  Report Type: 
  Country: None (occurrence: None)
  Receive Date: 20091102
  Receipt Date: 20091102
  Transmission Date: 20100525
  Serious: No
  Sender: FDA-Public Use
  Company Number: None

PATIENT
  Age: 78 Year

DRUGS (1)
  1. WARFARIN SODIUM [Suspect]
     Indication: CEREBROVASCULAR ACCIDENT PROPHYLAXIS
     Dosage: 7.5 MG PM PO
     Route: 048
     Dates: start: 20021209, end: 20081229

REACTIONS (8)
  - EARLY SATIETY [None]
  - HAEMATURIA [None]
  - HYPERTENSIVE CRISIS [None]
  - MEDICAL DEVICE COMPLICATION [None]
  - PAIN [None]
  - POST PROCEDURAL COMPLICATION [None]
  - RENAL MASS [None]
  - URINARY BLADDER HAEMORRHAGE [None]
